FAERS Safety Report 19853822 (Version 1)
Quarter: 2021Q3

REPORT INFORMATION
  Report Type: Spontaneous
  Country: US (occurrence: US)
  Receive Date: 20210920
  Receipt Date: 20210920
  Transmission Date: 20211014
  Serious: Yes (Hospitalization, Other)
  Sender: FDA-Public Use
  Company Number: US-AUROBINDO-AUR-APL-2021-038582

PATIENT
  Age: 8 Week
  Sex: Male

DRUGS (2)
  1. ACETAMINOPHEN. [Suspect]
     Active Substance: ACETAMINOPHEN
     Indication: PYREXIA
     Dosage: UNK
     Route: 065
  2. BACITRACIN. [Concomitant]
     Active Substance: BACITRACIN
     Indication: PRODUCT USED FOR UNKNOWN INDICATION
     Dosage: UNK
     Route: 065

REACTIONS (15)
  - Lip exfoliation [Recovered/Resolved]
  - Respiratory distress [Recovered/Resolved]
  - Normocytic anaemia [Recovered/Resolved]
  - Dry skin [Recovered/Resolved]
  - Discomfort [Recovered/Resolved]
  - Toxic epidermal necrolysis [Recovered/Resolved]
  - Vomiting [Recovered/Resolved]
  - Skin exfoliation [Recovered/Resolved]
  - Pain [Recovered/Resolved]
  - Pyrexia [Recovered/Resolved]
  - Corneal epithelium defect [Recovered/Resolved]
  - Symblepharon [Recovered/Resolved]
  - Macule [Recovered/Resolved]
  - Conjunctival hyperaemia [Recovered/Resolved]
  - Hypophagia [Recovered/Resolved]
